FAERS Safety Report 6502628-1 (Version None)
Quarter: 2009Q4

REPORT INFORMATION
  Report Type: 
  Country: None (occurrence: None)
  Receive Date: 20091127
  Receipt Date: 20090811
  Transmission Date: 20100525
  Serious: No
  Sender: FDA-Public Use
  Company Number: 001515

PATIENT

DRUGS (1)
  1. LACOSAMIDE [Suspect]
     Indication: LIMB DISCOMFORT
     Dosage: (ORAL) (400 MG QD ORAL)
     Route: 048
     Dates: start: 20090701

REACTIONS (2)
  - GAIT DISTURBANCE [None]
  - IMPAIRED DRIVING ABILITY [None]
